FAERS Safety Report 24009967 (Version 1)
Quarter: 2024Q2

REPORT INFORMATION
  Report Type: Spontaneous
  Country: US (occurrence: US)
  Receive Date: 20240625
  Receipt Date: 20240625
  Transmission Date: 20240716
  Serious: Yes (Life-Threatening, Hospitalization, Other)
  Sender: FDA-Public Use
  Company Number: US-MYLANLABS-2024M1057359

PATIENT
  Age: 24 Year
  Sex: Male

DRUGS (2)
  1. NALOXONE [Suspect]
     Active Substance: NALOXONE
     Indication: Drug use disorder
     Dosage: 4 MILLIGRAM (SPRAY, INTRANASAL)
     Route: 045
  2. FENTANYL [Suspect]
     Active Substance: FENTANYL\FENTANYL CITRATE
     Indication: Product used for unknown indication
     Dosage: UNK
     Route: 065

REACTIONS (4)
  - Pulmonary oedema [Recovering/Resolving]
  - Respiratory failure [Recovering/Resolving]
  - Stress cardiomyopathy [Recovering/Resolving]
  - Drug abuse [Unknown]
